FAERS Safety Report 16965019 (Version 1)
Quarter: 2019Q4

REPORT INFORMATION
  Report Type: Spontaneous
  Country: GB (occurrence: GB)
  Receive Date: 20191028
  Receipt Date: 20191028
  Transmission Date: 20200122
  Serious: Yes (Hospitalization)
  Sender: FDA-Public Use
  Company Number: GB-TEVA-2019-GB-1128717

PATIENT
  Age: 48 Year
  Sex: Female

DRUGS (8)
  1. CAPECITABINE. [Suspect]
     Active Substance: CAPECITABINE
     Indication: OESOPHAGEAL ADENOCARCINOMA
     Route: 065
  2. EPIRUBICIN [Suspect]
     Active Substance: EPIRUBICIN
     Indication: NEOADJUVANT THERAPY
  3. CISPLATIN. [Suspect]
     Active Substance: CISPLATIN
     Indication: OESOPHAGEAL ADENOCARCINOMA
     Route: 065
  4. 5-FLUOROURACIL [Suspect]
     Active Substance: FLUOROURACIL
     Indication: NEOADJUVANT THERAPY
  5. CISPLATIN. [Suspect]
     Active Substance: CISPLATIN
     Indication: NEOADJUVANT THERAPY
  6. 5-FLUOROURACIL [Suspect]
     Active Substance: FLUOROURACIL
     Indication: OESOPHAGEAL ADENOCARCINOMA
     Route: 065
  7. EPIRUBICIN [Suspect]
     Active Substance: EPIRUBICIN
     Indication: OESOPHAGEAL ADENOCARCINOMA
     Route: 065
  8. CAPECITABINE. [Suspect]
     Active Substance: CAPECITABINE
     Indication: NEOADJUVANT THERAPY

REACTIONS (6)
  - Weight bearing difficulty [Unknown]
  - Pain in extremity [Unknown]
  - Paraesthesia [Unknown]
  - Gait disturbance [Unknown]
  - Hypoaesthesia [Unknown]
  - Aortic thrombosis [Unknown]
